FAERS Safety Report 6732396-X (Version None)
Quarter: 2010Q2

REPORT INFORMATION
  Report Type: 
  Country: None (occurrence: None)
  Receive Date: 20100519
  Receipt Date: 20100514
  Transmission Date: 20101027
  Serious: Yes (Other)
  Sender: FDA-Public Use
  Company Number: CA-MERCK-1005USA01722

PATIENT
  Age: 83 Year
  Sex: Male
  Weight: 78 kg

DRUGS (2)
  1. PROSCAR [Suspect]
     Route: 048
  2. FLOMAX (MORNIFLUMATE) [Concomitant]
     Route: 065

REACTIONS (3)
  - BIOPSY BREAST ABNORMAL [None]
  - BREAST CANCER MALE [None]
  - BREAST DISORDER [None]
